FAERS Safety Report 6502571-8 (Version None)
Quarter: 2009Q4

REPORT INFORMATION
  Report Type: 
  Country: None (occurrence: None)
  Receive Date: 20091127
  Receipt Date: 20090730
  Transmission Date: 20100525
  Serious: No
  Sender: FDA-Public Use
  Company Number: 001513

PATIENT
  Sex: Female

DRUGS (3)
  1. LACOSAMIDE [Suspect]
     Indication: CONVULSION
     Dosage: (100 MG BID ORAL)
     Route: 048
     Dates: start: 20090720
  2. TRILEPTAL [Concomitant]
  3. LAMICTAL [Concomitant]

REACTIONS (3)
  - CONVULSION [None]
  - HEADACHE [None]
  - HYPONATRAEMIA [None]
